FAERS Safety Report 4299517-2 (Version None)
Quarter: 2004Q1

REPORT INFORMATION
  Report Type: 
  Country: None (occurrence: None)
  Receive Date: 20040217
  Receipt Date: 20040209
  Transmission Date: 20041129
  Serious: Yes (Other)
  Sender: FDA-Public Use
  Company Number: 200410661BCC

PATIENT
  Age: 74 Year
  Sex: Female
  Weight: 62.5964 kg

DRUGS (3)
  1. ALEVE (CAPLET) [Suspect]
     Indication: PAIN
     Dosage: 220 MG, BID, ORAL
     Route: 048
     Dates: start: 20040204, end: 20040207
  2. ZYPREXA [Concomitant]
  3. LESCOL [Concomitant]

REACTIONS (1)
  - RENAL PAIN [None]
